FAERS Safety Report 8454153-9 (Version None)
Quarter: 2012Q2

REPORT INFORMATION
  Report Type: 
  Country: None (occurrence: None)
  Receive Date: 20120620
  Receipt Date: 20120613
  Transmission Date: 20120825
  Serious: Yes (Hospitalization)
  Sender: FDA-Public Use
  Company Number: ES-B.I. PHARMACEUTICALS,INC./RIDGEFIELD-2012-ES-00255ES

PATIENT
  Age: 80 Year
  Sex: Male

DRUGS (7)
  1. CARBAMAZEPINE [Suspect]
     Indication: PARTIAL SEIZURES
     Dosage: 800 MG
     Route: 048
     Dates: start: 19920101
  2. AMIODARONE HCL [Concomitant]
     Indication: ATRIAL FIBRILLATION
     Route: 048
     Dates: start: 20120316, end: 20120330
  3. OMNIC OCAS [Concomitant]
     Indication: BENIGN PROSTATIC HYPERPLASIA
     Dosage: 0.4 MG
     Route: 048
     Dates: start: 19920101
  4. PHENOBARBITAL TAB [Suspect]
     Indication: PARTIAL SEIZURES
     Dosage: 1 MG
     Route: 048
     Dates: start: 19920101
  5. PHENYTOIN SODIUM [Suspect]
     Indication: PARTIAL SEIZURES
     Dosage: 200 MG
     Route: 048
     Dates: start: 19920101
  6. PRADAXA [Suspect]
     Indication: ATRIAL FIBRILLATION
     Dosage: 220 MG
     Route: 048
     Dates: start: 20120316, end: 20120330
  7. SPIRIVA [Concomitant]
     Indication: CHRONIC OBSTRUCTIVE PULMONARY DISEASE
     Dosage: 18 MCG
     Route: 055
     Dates: start: 19920101

REACTIONS (2)
  - DRUG INTERACTION [None]
  - EMBOLIC STROKE [None]
